FAERS Safety Report 10190799 (Version 3)
Quarter: 2014Q4

REPORT INFORMATION
  Report Type: Report from Study
  Country: CN (occurrence: CN)
  Receive Date: 20140523
  Receipt Date: 20141106
  Transmission Date: 20150528
  Serious: No
  Sender: FDA-Public Use
  Company Number: PHHY2014CN059484

PATIENT
  Age: 40 Year
  Sex: Male

DRUGS (3)
  1. TASIGNA [Suspect]
     Active Substance: NILOTINIB
     Dosage: 600 MG (300 MG IN MORNING AND 300 MG AT NIGHT)
     Route: 048
     Dates: end: 20140527
  2. GLIVEC [Suspect]
     Active Substance: IMATINIB MESYLATE
     Indication: CHRONIC MYELOID LEUKAEMIA
     Route: 065
  3. TASIGNA [Suspect]
     Active Substance: NILOTINIB
     Indication: CHRONIC MYELOID LEUKAEMIA
     Dosage: 600 MG (400 MG IN MORNING AND 200 MG AT NIGHT)
     Route: 048
     Dates: start: 20140501, end: 20140527

REACTIONS (7)
  - Gamma-glutamyltransferase increased [Unknown]
  - Fatigue [Unknown]
  - Alanine aminotransferase increased [Unknown]
  - Blood alkaline phosphatase decreased [Unknown]
  - Blood creatine phosphokinase increased [Unknown]
  - Hyperbilirubinaemia [Unknown]
  - Oedema [Unknown]
